FAERS Safety Report 4719735-6 (Version None)
Quarter: 2005Q3

REPORT INFORMATION
  Report Type: 
  Country: None (occurrence: None)
  Receive Date: 20050721
  Receipt Date: 20040707
  Transmission Date: 20060218
  Serious: No
  Sender: FDA-Public Use
  Company Number: US-GLAXOSMITHKLINE-A0517245A

PATIENT
  Age: 78 Year
  Sex: Male

DRUGS (9)
  1. AVANDIA [Suspect]
     Dosage: 8MG PER DAY
     Route: 048
  2. COREG [Concomitant]
  3. GLYBURIDE [Concomitant]
  4. SELENIUM SULFIDE [Concomitant]
  5. PLETAL [Concomitant]
     Route: 065
  6. IRON [Concomitant]
  7. VITAMIN B-12 [Concomitant]
  8. PILOCARPINE [Concomitant]
  9. COSOPT [Concomitant]

REACTIONS (1)
  - WEIGHT INCREASED [None]
